FAERS Safety Report 9733110 (Version 2)
Quarter: 2014Q1

REPORT INFORMATION
  Report Type: Spontaneous
  Country: DE (occurrence: DE)
  Receive Date: 20131205
  Receipt Date: 20140122
  Transmission Date: 20141002
  Serious: Yes (Other)
  Sender: FDA-Public Use
  Company Number: GXKR2013DE003671

PATIENT
  Sex: Male
  Weight: 84 kg

DRUGS (5)
  1. BISOPROLOL 1A PHARMA [Suspect]
     Indication: HYPERTENSION
     Dosage: 1.25 MG, QD
     Route: 048
     Dates: start: 201307
  2. BISOPROLOL 1A PHARMA [Suspect]
     Dosage: 2.5 MG, QD
     Dates: start: 201309, end: 20131217
  3. VALSARTAN [Concomitant]
     Indication: HYPERTENSION
     Dosage: 40 MG, QD
     Route: 048
     Dates: start: 201302, end: 20130908
  4. L-THYROXIN [Concomitant]
     Dosage: 1 DF, QD, LONG TERM
  5. XARELTO [Concomitant]
     Indication: ATRIAL FIBRILLATION
     Dosage: 20 MG, UNK
     Dates: start: 20130928

REACTIONS (5)
  - Pharyngeal haemorrhage [Recovering/Resolving]
  - Haemoptysis [Recovering/Resolving]
  - Personality disorder [Unknown]
  - Bradyphrenia [Unknown]
  - Dizziness [Unknown]
